FAERS Safety Report 9785123 (Version 1)
Quarter: 2013Q4

REPORT INFORMATION
  Report Type: Report from Study
  Country: DE (occurrence: DE)
  Receive Date: 20131227
  Receipt Date: 20131227
  Transmission Date: 20140711
  Serious: Yes (Life-Threatening, Hospitalization)
  Sender: FDA-Public Use
  Company Number: DE-ROCHE-1324523

PATIENT
  Age: 73 Year
  Sex: Male
  Weight: 82.2 kg

DRUGS (7)
  1. METHOXY POLYETHYLENE GLYCOL-EPOETIN BETA [Suspect]
     Indication: RENAL FAILURE CHRONIC
     Route: 058
     Dates: start: 20111213
  2. PHENPROCOUMON [Concomitant]
     Dosage: INR DEPENDENT, THERAPY RESTART AFTER THE PAUSE
     Route: 048
     Dates: start: 20111222
  3. PHENPROCOUMON [Concomitant]
     Dosage: PRIOR TO PAUS
     Route: 048
  4. TACROLIMUS [Concomitant]
     Route: 048
  5. ACETYLSALICYLIC ACID [Concomitant]
     Indication: CORONARY ARTERY DISEASE
     Route: 048
  6. VALSARTAN [Concomitant]
     Dosage: 1-0-0.5
     Route: 048
  7. MYCOPHENOLATE MOFETIL [Concomitant]
     Dosage: 1-0-0.5
     Route: 048
     Dates: end: 20120123

REACTIONS (1)
  - Oedema peripheral [Recovered/Resolved]
